FAERS Safety Report 8141938-1 (Version None)
Quarter: 2012Q1

REPORT INFORMATION
  Report Type: 
  Country: None (occurrence: None)
  Receive Date: 20120216
  Receipt Date: 20120206
  Transmission Date: 20120608
  Serious: Yes (Life-Threatening, Hospitalization)
  Sender: FDA-Public Use
  Company Number: FR-GLAXOSMITHKLINE-B0771457A

PATIENT
  Sex: Male
  Weight: 57 kg

DRUGS (1)
  1. ARIXTRA [Suspect]
     Indication: DEEP VEIN THROMBOSIS
     Dosage: 7.5MG PER DAY
     Route: 058
     Dates: start: 20111109, end: 20111205

REACTIONS (4)
  - INCORRECT DRUG ADMINISTRATION DURATION [None]
  - ANAEMIA [None]
  - SUBCUTANEOUS HAEMATOMA [None]
  - HYPOVOLAEMIC SHOCK [None]
